FAERS Safety Report 4660198-7 (Version None)
Quarter: 2005Q2

REPORT INFORMATION
  Report Type: 
  Country: None (occurrence: None)
  Receive Date: 20050510
  Receipt Date: 20050426
  Transmission Date: 20051028
  Serious: Yes (Hospitalization)
  Sender: FDA-Public Use
  Company Number: 05P-163-0298889-00

PATIENT
  Age: 52 Year
  Sex: Female

DRUGS (8)
  1. HUMIRA [Suspect]
     Indication: RHEUMATOID ARTHRITIS
     Dosage: 40 MG, EVERY MONTH
  2. PREDNISONE [Concomitant]
  3. MYCOPHENATE MOFETIL [Concomitant]
  4. EPOGEN [Concomitant]
  5. VALDECOXIB [Concomitant]
  6. FOLIC ACID [Concomitant]
  7. RABEPRAZOLE SODIUM [Concomitant]
  8. ZOLPIDEM TARTRATE [Concomitant]

REACTIONS (4)
  - HAEMATURIA [None]
  - LUPUS NEPHRITIS [None]
  - RENAL ARTERIOSCLEROSIS [None]
  - RENAL FAILURE ACUTE [None]
